FAERS Safety Report 14552873 (Version 5)
Quarter: 2018Q4

REPORT INFORMATION
  Report Type: Spontaneous
  Country: JP (occurrence: JP)
  Receive Date: 20180220
  Receipt Date: 20181024
  Transmission Date: 20190204
  Serious: Yes (Death, Hospitalization, Other)
  Sender: FDA-Public Use
  Company Number: JP-009507513-1705JPN003219J

PATIENT
  Age: 81 Year
  Sex: Male
  Weight: 57 kg

DRUGS (11)
  1. RABEPRAZOLE SODIUM. [Concomitant]
     Active Substance: RABEPRAZOLE SODIUM
     Dosage: 10 MG, QD
     Route: 048
  2. BARACLUDE [Concomitant]
     Active Substance: ENTECAVIR
     Dosage: 0.5 MG, QD
     Route: 048
  3. OXYCONTIN [Concomitant]
     Active Substance: OXYCODONE HYDROCHLORIDE
     Indication: LUNG ADENOCARCINOMA
     Dosage: 10 MG, BID
     Route: 048
  4. MAGNESIUM OXIDE. [Concomitant]
     Active Substance: MAGNESIUM OXIDE
     Dosage: 660 MG, UNK
     Route: 048
  5. BROTIZOLAM [Concomitant]
     Active Substance: BROTIZOLAM
     Dosage: 0.25 MG, QD
     Route: 048
  6. KEYTRUDA [Suspect]
     Active Substance: PEMBROLIZUMAB
     Indication: LUNG ADENOCARCINOMA
     Dosage: 200 MG, Q3W
     Route: 041
     Dates: start: 20170420, end: 20171110
  7. URIEF [Concomitant]
     Active Substance: SILODOSIN
     Dosage: 4.0 MG, BID
     Route: 048
  8. AVOLVE [Concomitant]
     Active Substance: DUTASTERIDE
     Dosage: 0.5 MG, QD
     Route: 048
  9. LOXOMARIN [Concomitant]
     Active Substance: LOXOPROFEN
     Indication: LUNG ADENOCARCINOMA
     Dosage: 60 MG, UNK
     Route: 048
  10. NOVAMIN (PROCHLORPERAZINE MALEATE) [Concomitant]
     Active Substance: PROCHLORPERAZINE MALEATE
     Indication: LUNG ADENOCARCINOMA
     Dosage: 5 MG, UNK
     Route: 048
     Dates: end: 20170503
  11. TENOZET [Concomitant]
     Active Substance: TENOFOVIR DISOPROXIL FUMARATE
     Dosage: 300 MG, QD
     Route: 048

REACTIONS (6)
  - Death [Fatal]
  - Pneumocystis jirovecii pneumonia [Fatal]
  - Infection [Unknown]
  - Nausea [Unknown]
  - Pyelonephritis [Recovered/Resolved]
  - Septic shock [Recovered/Resolved]

NARRATIVE: CASE EVENT DATE: 201705
